FAERS Safety Report 9434917 (Version 1)
Quarter: 2013Q3

REPORT INFORMATION
  Report Type: Spontaneous
  Country: US (occurrence: US)
  Receive Date: 20130801
  Receipt Date: 20130801
  Transmission Date: 20140515
  Serious: Yes (Other)
  Sender: FDA-Public Use
  Company Number: CHPA2013US012009

PATIENT
  Age: 69 Year
  Sex: Female

DRUGS (4)
  1. PERDIEM FIBER [Suspect]
     Indication: COLITIS ULCERATIVE
     Dosage: UNK, UNK
     Route: 048
     Dates: start: 2000, end: 2003
  2. PERDIEM FIBER [Suspect]
     Indication: CONSTIPATION
  3. PERDIEM OVERNIGHT RELIEF PILLS [Suspect]
     Indication: COLITIS ULCERATIVE
     Dosage: 2 DF, UNK
     Route: 048
     Dates: start: 2003
  4. PERDIEM OVERNIGHT RELIEF PILLS [Suspect]
     Indication: CONSTIPATION

REACTIONS (6)
  - Colitis ulcerative [Recovering/Resolving]
  - Constipation [Unknown]
  - Incorrect drug administration duration [Unknown]
  - Incorrect dose administered [Unknown]
  - Off label use [Unknown]
  - Drug ineffective [Unknown]
